FAERS Safety Report 10053152 (Version 2)
Quarter: 2014Q2

REPORT INFORMATION
  Report Type: Spontaneous
  Country: US (occurrence: US)
  Receive Date: 20140402
  Receipt Date: 20140403
  Transmission Date: 20141212
  Serious: Yes (Hospitalization)
  Sender: FDA-Public Use
  Company Number: US-BAYER-2014-045734

PATIENT
  Age: 77 Year
  Sex: Male

DRUGS (1)
  1. ALEVE CAPLET [Suspect]
     Indication: PAIN IN EXTREMITY
     Dosage: 2 DF, BID
     Route: 048

REACTIONS (2)
  - Renal failure acute [None]
  - Extra dose administered [None]
